FAERS Safety Report 8514784-4 (Version None)
Quarter: 2012Q3

REPORT INFORMATION
  Report Type: 
  Country: None (occurrence: None)
  Receive Date: 20120711
  Receipt Date: 20120711
  Transmission Date: 20120928
  Serious: Yes (Other)
  Sender: FDA-Public Use
  Company Number: None

PATIENT
  Age: 29 Year
  Sex: Female
  Weight: 71.6683 kg

DRUGS (3)
  1. VITRASE [Suspect]
  2. VITRASE [Concomitant]
  3. RESTYLANE [Concomitant]

REACTIONS (12)
  - PALPITATIONS [None]
  - CONFUSIONAL STATE [None]
  - ERYTHEMA [None]
  - RHINALGIA [None]
  - OCULAR HYPERAEMIA [None]
  - HEADACHE [None]
  - FEELING ABNORMAL [None]
  - EYE DISORDER [None]
  - BURNING SENSATION [None]
  - SKIN WRINKLING [None]
  - LACRIMATION INCREASED [None]
  - VITREOUS FLOATERS [None]
